FAERS Safety Report 9770731 (Version 1)
Quarter: 2013Q4

REPORT INFORMATION
  Report Type: Spontaneous
  Country: US (occurrence: US)
  Receive Date: 20131218
  Receipt Date: 20131218
  Transmission Date: 20140711
  Serious: No
  Sender: FDA-Public Use
  Company Number: US-TEVA-450431USA

PATIENT
  Sex: Female
  Weight: 112.59 kg

DRUGS (7)
  1. PROAIR HFA [Suspect]
     Indication: PULMONARY HYPERTENSION
     Dates: start: 201212
  2. PROAIR HFA [Suspect]
     Indication: INTERSTITIAL LUNG DISEASE
  3. PROAIR HFA [Suspect]
     Indication: BRONCHITIS
  4. GLYBURIDE W/METFORMIN [Concomitant]
     Indication: TYPE 2 DIABETES MELLITUS
  5. PREDNISONE [Concomitant]
     Indication: WHEEZING
     Dates: start: 201308
  6. SPIRIVA [Concomitant]
     Indication: PULMONARY HYPERTENSION
  7. SPIRIVA [Concomitant]
     Indication: INTERSTITIAL LUNG DISEASE

REACTIONS (3)
  - Rhinorrhoea [Not Recovered/Not Resolved]
  - Blood glucose increased [Not Recovered/Not Resolved]
  - Wheezing [Not Recovered/Not Resolved]
